FAERS Safety Report 5851201-7 (Version None)
Quarter: 2008Q3

REPORT INFORMATION
  Report Type: 
  Country: None (occurrence: None)
  Receive Date: 20080820
  Receipt Date: 20080812
  Transmission Date: 20090109
  Serious: Yes (Life-Threatening, Hospitalization)
  Sender: FDA-Public Use
  Company Number: PHHO2008KR09093

PATIENT
  Sex: Male
  Weight: 69 kg

DRUGS (3)
  1. TASIGNA [Suspect]
     Indication: CHRONIC MYELOID LEUKAEMIA
     Dosage: 800 MG, QD
     Route: 048
     Dates: start: 20080411, end: 20080722
  2. TASIGNA [Suspect]
     Dosage: UNK
     Dates: start: 20080723, end: 20080730
  3. TASIGNA [Suspect]
     Dosage: 800 MG, QD
     Route: 048
     Dates: start: 20080731

REACTIONS (7)
  - BLOOD PRESSURE DECREASED [None]
  - CHRONIC MYELOID LEUKAEMIA [None]
  - DRUG INEFFECTIVE [None]
  - FEBRILE NEUTROPENIA [None]
  - KLEBSIELLA INFECTION [None]
  - PANCYTOPENIA [None]
  - SEPTIC SHOCK [None]
